FAERS Safety Report 12442710 (Version 1)
Quarter: 2016Q2

REPORT INFORMATION
  Report Type: Spontaneous
  Country: US (occurrence: None)
  Receive Date: 20160606
  Receipt Date: 20160606
  Transmission Date: 20160815
  Serious: No
  Sender: FDA-Public Use
  Company Number: None

PATIENT
  Age: 76 Year
  Sex: Female
  Weight: 76.2 kg

DRUGS (4)
  1. MULTIPLE VITAMIN [Concomitant]
     Active Substance: VITAMINS
  2. SPIRIVA [Concomitant]
     Active Substance: TIOTROPIUM BROMIDE MONOHYDRATE
  3. NITROFURANTOIN. [Suspect]
     Active Substance: NITROFURANTOIN
     Dosage: 2 CAPSULES TWICE A DAY
     Route: 048
     Dates: start: 20160530, end: 20160602
  4. CURAMED [Concomitant]

REACTIONS (7)
  - Product substitution issue [None]
  - Cough [None]
  - Pyrexia [None]
  - Abasia [None]
  - Pruritus [None]
  - Chills [None]
  - Dyspnoea [None]

NARRATIVE: CASE EVENT DATE: 20160602
